FAERS Safety Report 10966496 (Version 1)
Quarter: 2015Q1

REPORT INFORMATION
  Report Type: Spontaneous
  Country: NL (occurrence: NL)
  Receive Date: 20150330
  Receipt Date: 20150330
  Transmission Date: 20150721
  Serious: Yes (Other)
  Sender: FDA-Public Use
  Company Number: NL-PFIZER INC-2015103622

PATIENT
  Age: 66 Year
  Sex: Male
  Weight: 78 kg

DRUGS (3)
  1. ATORVASTATINE PFIZER [Suspect]
     Active Substance: ATORVASTATIN
     Indication: PROPHYLAXIS
     Dosage: 10 MG, ALTERNATE DAY
     Dates: start: 20100304, end: 20140213
  2. ASCAL CARDIO [Concomitant]
     Active Substance: CARBASALATE
     Dosage: 1 DF, 1X/DAY
     Dates: start: 2008
  3. COAPROVEL [Concomitant]
     Active Substance: HYDROCHLOROTHIAZIDE\IRBESARTAN
     Dosage: 1 DF, 1X/DAY
     Dates: start: 2008

REACTIONS (1)
  - Interstitial lung disease [Recovered/Resolved]

NARRATIVE: CASE EVENT DATE: 20140213
